FAERS Safety Report 18888892 (Version 1)
Quarter: 2021Q1

REPORT INFORMATION
  Report Type: Other
  Country: US (occurrence: US)
  Receive Date: 20210212
  Receipt Date: 20210212
  Transmission Date: 20210420
  Serious: No
  Sender: FDA-Public Use
  Company Number: US-NEUROCRINE BIOSCIENCES INC.-2021NBI00527

PATIENT
  Age: 72 Year
  Sex: Female

DRUGS (5)
  1. ONGENTYS [Suspect]
     Active Substance: OPICAPONE
     Indication: PARKINSON^S DISEASE
     Route: 048
     Dates: start: 202011
  2. DONEPEZIL. [Concomitant]
     Active Substance: DONEPEZIL
  3. PRAVASTATIN. [Concomitant]
     Active Substance: PRAVASTATIN
  4. SELEGILINE [Concomitant]
     Active Substance: SELEGILINE
  5. LEVOTHYROXINE. [Concomitant]
     Active Substance: LEVOTHYROXINE

REACTIONS (1)
  - Constipation [Unknown]
